FAERS Safety Report 16476507 (Version 1)
Quarter: 2019Q2

REPORT INFORMATION
  Report Type: Spontaneous
  Country: US (occurrence: US)
  Receive Date: 20190626
  Receipt Date: 20190626
  Transmission Date: 20190711
  Serious: No
  Sender: FDA-Public Use
  Company Number: US-ELI_LILLY_AND_COMPANY-US201906010485

PATIENT
  Sex: Male

DRUGS (4)
  1. HUMALOG [Suspect]
     Active Substance: INSULIN LISPRO
     Indication: TYPE 2 DIABETES MELLITUS
     Dosage: UNK UNK, UNKNOWN
     Route: 065
  2. LEVEMIR [Concomitant]
     Active Substance: INSULIN DETEMIR
     Indication: TYPE 2 DIABETES MELLITUS
  3. HUMALOG [Suspect]
     Active Substance: INSULIN LISPRO
     Dosage: 5 U, TID
     Route: 065
     Dates: start: 20190617
  4. CIPROFLOXACIN. [Concomitant]
     Active Substance: CIPROFLOXACIN
     Indication: PROSTATIC DISORDER

REACTIONS (2)
  - Blood glucose increased [Unknown]
  - Product storage error [Unknown]
